FAERS Safety Report 11905844 (Version 1)
Quarter: 2016Q1

REPORT INFORMATION
  Report Type: Report from Study
  Country: US (occurrence: US)
  Receive Date: 20160111
  Receipt Date: 20160111
  Transmission Date: 20160526
  Serious: Yes (Hospitalization, Other)
  Sender: FDA-Public Use
  Company Number: US-AMGEN-USASL2015111292

PATIENT
  Age: 68 Year
  Sex: Male

DRUGS (2)
  1. KYPROLIS [Suspect]
     Active Substance: CARFILZOMIB
     Dosage: UNK
     Route: 065
     Dates: start: 201509, end: 201511
  2. KYPROLIS [Suspect]
     Active Substance: CARFILZOMIB
     Indication: PLASMA CELL MYELOMA
     Dosage: UNK
     Route: 065
     Dates: start: 2015

REACTIONS (8)
  - Renal failure [Unknown]
  - Immunodeficiency [Unknown]
  - Malaise [Unknown]
  - Asthenia [Unknown]
  - Cystitis [Unknown]
  - Mobility decreased [Unknown]
  - Urinary tract infection [Unknown]
  - Delirium [Unknown]

NARRATIVE: CASE EVENT DATE: 2015
